FAERS Safety Report 18528727 (Version 1)
Quarter: 2020Q4

REPORT INFORMATION
  Report Type: Spontaneous
  Country: US (occurrence: US)
  Receive Date: 20201120
  Receipt Date: 20201120
  Transmission Date: 20210114
  Serious: Yes (Other)
  Sender: FDA-Public Use
  Company Number: NVSC2020US304347

PATIENT
  Age: 53 Year
  Sex: Female

DRUGS (4)
  1. VENCLEXTA [Suspect]
     Active Substance: VENETOCLAX
     Indication: REMISSION NOT ACHIEVED
  2. INSULIN [Concomitant]
     Active Substance: INSULIN NOS
     Indication: PRODUCT USED FOR UNKNOWN INDICATION
     Dosage: UNK
     Route: 065
  3. RITALIN [Suspect]
     Active Substance: METHYLPHENIDATE HYDROCHLORIDE
     Indication: PRODUCT USED FOR UNKNOWN INDICATION
     Dosage: UNK
     Route: 048
  4. VENCLEXTA [Suspect]
     Active Substance: VENETOCLAX
     Indication: LYMPHOCYTIC LEUKAEMIA
     Dosage: 400 MG, BID
     Route: 048

REACTIONS (11)
  - Therapeutic response shortened [Unknown]
  - Leukaemia [Unknown]
  - Balance disorder [Unknown]
  - Autonomic nervous system imbalance [Unknown]
  - Fatigue [Unknown]
  - Coma [Unknown]
  - Thrombosis [Unknown]
  - International normalised ratio increased [Unknown]
  - Dizziness [Unknown]
  - Feeling hot [Unknown]
  - Coagulopathy [Unknown]

NARRATIVE: CASE EVENT DATE: 201710
